FAERS Safety Report 7945559-2 (Version None)
Quarter: 2011Q4

REPORT INFORMATION
  Report Type: 
  Country: None (occurrence: None)
  Receive Date: 20111125
  Receipt Date: 20111115
  Transmission Date: 20120403
  Serious: Yes (Hospitalization)
  Sender: FDA-Public Use
  Company Number: 2011SP053809

PATIENT
  Age: 39 Year
  Sex: Female

DRUGS (6)
  1. GANIRELIX ACETATE INJECTION [Suspect]
     Indication: INFERTILITY
     Dosage: 0.25 MG;QD 0.25 MG;QD
     Dates: start: 20110323, end: 20110404
  2. GANIRELIX ACETATE INJECTION [Suspect]
     Indication: INFERTILITY
     Dosage: 0.25 MG;QD 0.25 MG;QD
     Dates: start: 20110506, end: 20110518
  3. OVITRELLE (CHORIOGONADOTROPIN ALFA) [Suspect]
     Indication: INFERTILITY
     Dosage: 2.5 MCG; ONCE 2.5 MCG; ONCE
     Dates: start: 20110405, end: 20110405
  4. OVITRELLE (CHORIOGONADOTROPIN ALFA) [Suspect]
     Indication: INFERTILITY
     Dosage: 2.5 MCG; ONCE 2.5 MCG; ONCE
     Dates: start: 20110519, end: 20110519
  5. GONAL-F [Suspect]
     Indication: INFERTILITY
     Dates: start: 20110506, end: 20110518
  6. GONAL-F [Suspect]
     Indication: INFERTILITY
     Dates: start: 20110323, end: 20110404

REACTIONS (8)
  - OVARIAN HYPERSTIMULATION SYNDROME [None]
  - PROTEINURIA [None]
  - TWIN PREGNANCY [None]
  - HAEMOGLOBIN DECREASED [None]
  - HYPERTENSION [None]
  - PLATELET COUNT INCREASED [None]
  - HYPERTRANSAMINASAEMIA [None]
  - DRUG INTERACTION [None]
